FAERS Safety Report 8511965-0 (Version None)
Quarter: 2012Q3

REPORT INFORMATION
  Report Type: 
  Country: None (occurrence: None)
  Receive Date: 20120716
  Receipt Date: 20120713
  Transmission Date: 20120928
  Serious: Yes (Other)
  Sender: FDA-Public Use
  Company Number: US-PFIZER INC-2012153282

PATIENT
  Sex: Female
  Weight: 56.689 kg

DRUGS (3)
  1. PROTONIX [Suspect]
     Indication: GASTROOESOPHAGEAL REFLUX DISEASE
     Dosage: 40 MG, 2X/DAY
     Route: 048
     Dates: start: 20080101, end: 20120501
  2. METOPROLOL [Concomitant]
     Dosage: UNK
  3. PANTOPRAZOLE [Suspect]
     Indication: GASTROOESOPHAGEAL REFLUX DISEASE
     Dosage: 40 MG, 1X/DAY
     Route: 048
     Dates: start: 20120501, end: 20120601

REACTIONS (5)
  - BLOOD CHOLESTEROL INCREASED [None]
  - MALAISE [None]
  - BALANCE DISORDER [None]
  - ABDOMINAL PAIN UPPER [None]
  - DIZZINESS [None]
